FAERS Safety Report 14258767 (Version 2)
Quarter: 2018Q2

REPORT INFORMATION
  Report Type: Spontaneous
  Country: GB (occurrence: GB)
  Receive Date: 20171207
  Receipt Date: 20180423
  Transmission Date: 20180711
  Serious: Yes (Other)
  Sender: FDA-Public Use
  Company Number: GB-009507513-1711GBR011273

PATIENT
  Age: 22 Year
  Sex: Female
  Weight: 67 kg

DRUGS (1)
  1. ETONOGESTREL IMPLANT- UNKNOWN [Suspect]
     Active Substance: ETONOGESTREL
     Indication: CONTRACEPTION
     Dosage: 68 MG, UNK
     Route: 059
     Dates: start: 20171101, end: 20171107

REACTIONS (4)
  - Tachycardia [Unknown]
  - Flushing [Unknown]
  - Skin discolouration [Unknown]
  - Implant site erythema [Not Recovered/Not Resolved]

NARRATIVE: CASE EVENT DATE: 20171102
